FAERS Safety Report 14239117 (Version 1)
Quarter: 2017Q4

REPORT INFORMATION
  Report Type: Spontaneous
  Country: US (occurrence: US)
  Receive Date: 20171127
  Receipt Date: 20171127
  Transmission Date: 20180321
  Serious: Yes (Other)
  Sender: FDA-Public Use
  Company Number: None

PATIENT
  Age: 73 Year
  Sex: Male
  Weight: 82.03 kg

DRUGS (9)
  1. LORAZEPAM. [Concomitant]
     Active Substance: LORAZEPAM
  2. DULOXETINE. [Concomitant]
     Active Substance: DULOXETINE
  3. OXYCODONE [Concomitant]
     Active Substance: OXYCODONE
  4. TEMOZOLOMIDE. [Suspect]
     Active Substance: TEMOZOLOMIDE
     Indication: BRAIN NEOPLASM MALIGNANT
     Route: 048
     Dates: start: 20170627, end: 20171127
  5. ARIPIPRAZOLE. [Concomitant]
     Active Substance: ARIPIPRAZOLE
  6. BELSOMRA [Concomitant]
     Active Substance: SUVOREXANT
  7. POTASSIUM CHLORIDE. [Concomitant]
     Active Substance: POTASSIUM CHLORIDE
  8. AMPHETAMINE-DEXTROAMPHETAMINE [Concomitant]
     Active Substance: AMPHETAMINE SULFATE\DEXTROAMPHETAMINE
  9. TAMSULOSIN [Concomitant]
     Active Substance: TAMSULOSIN

REACTIONS (1)
  - Disease progression [None]
